FAERS Safety Report 17454538 (Version 1)
Quarter: 2020Q1

REPORT INFORMATION
  Report Type: Spontaneous
  Country: US (occurrence: US)
  Receive Date: 20200224
  Receipt Date: 20200224
  Transmission Date: 20200409
  Serious: Yes (Other)
  Sender: FDA-Public Use
  Company Number: None

PATIENT
  Age: 64 Year
  Sex: Female
  Weight: 69.75 kg

DRUGS (7)
  1. BUTALBITOL 50-325-40 MIKART [Concomitant]
     Active Substance: ACETAMINOPHEN\BUTALBITAL\CAFFEINE
  2. ATENOLOL. [Concomitant]
     Active Substance: ATENOLOL
  3. EMGALITY [Suspect]
     Active Substance: GALCANEZUMAB-GNLM
     Indication: MIGRAINE
     Dosage: ?          QUANTITY:1 INJECTION(S);OTHER FREQUENCY:MONTHLY;OTHER ROUTE:INJECTED INTO MY THIGH?
  4. PRAVASTATIN. [Concomitant]
     Active Substance: PRAVASTATIN
  5. SUMATRIPTAN. [Concomitant]
     Active Substance: SUMATRIPTAN
  6. CALCIUM [Concomitant]
     Active Substance: CALCIUM
  7. VITAMIN D3 [Concomitant]
     Active Substance: CHOLECALCIFEROL

REACTIONS (6)
  - Aura [None]
  - Loss of personal independence in daily activities [None]
  - Vertigo [None]
  - Nausea [None]
  - Weight increased [None]
  - Impaired ability to use machinery [None]

NARRATIVE: CASE EVENT DATE: 20191015
